FAERS Safety Report 10780417 (Version 1)
Quarter: 2015Q1

REPORT INFORMATION
  Report Type: Spontaneous
  Country: US (occurrence: US)
  Receive Date: 20150210
  Receipt Date: 20150210
  Transmission Date: 20150721
  Serious: No
  Sender: FDA-Public Use
  Company Number: US-GLAXOSMITHKLINE-A1085596A

PATIENT

DRUGS (3)
  1. TYKERB [Suspect]
     Active Substance: LAPATINIB DITOSYLATE
     Indication: BREAST CANCER
     Dosage: 250 MG TABLETS (1250 MG DAILY)
     Route: 048
     Dates: start: 20140227
  2. XELODA [Concomitant]
     Active Substance: CAPECITABINE
  3. PROTONIX [Concomitant]
     Active Substance: PANTOPRAZOLE SODIUM

REACTIONS (3)
  - Gastrointestinal disorder [Unknown]
  - Nausea [Unknown]
  - Burn of internal organs [Unknown]

NARRATIVE: CASE EVENT DATE: 20140410
